FAERS Safety Report 11090109 (Version 1)
Quarter: 2015Q2

REPORT INFORMATION
  Report Type: Spontaneous
  Country: IN (occurrence: None)
  Receive Date: 20150501
  Receipt Date: 20150501
  Transmission Date: 20150821
  Serious: Yes (Other)
  Sender: FDA-Public Use
  Company Number: INT_00745_2015

PATIENT
  Age: 35 Year
  Sex: Female

DRUGS (1)
  1. PACLITAXEL (PACLITAEXL) (HQ SPECIALTY) [Suspect]
     Active Substance: PACLITAXEL
     Indication: OESTROGEN RECEPTOR POSITIVE BREAST CANCER
     Dosage: PER WEEK

REACTIONS (6)
  - Erythema [None]
  - Peripheral swelling [None]
  - Macule [None]
  - Rash pustular [None]
  - Skin toxicity [None]
  - Papule [None]
